FAERS Safety Report 16076087 (Version 1)
Quarter: 2019Q1

REPORT INFORMATION
  Report Type: Spontaneous
  Country: HU (occurrence: HU)
  Receive Date: 20190315
  Receipt Date: 20190315
  Transmission Date: 20190418
  Serious: Yes (Other)
  Sender: FDA-Public Use
  Company Number: HU-ALVOGEN-2019-ALVOGEN-098782

PATIENT
  Age: 40 Year
  Sex: Female

DRUGS (9)
  1. EXEMESTANE. [Suspect]
     Active Substance: EXEMESTANE
     Indication: METASTASES TO SKIN
  2. LETROZOLE. [Suspect]
     Active Substance: LETROZOLE
     Indication: OESTROGEN RECEPTOR POSITIVE BREAST CANCER
  3. LETROZOLE. [Suspect]
     Active Substance: LETROZOLE
     Indication: INVASIVE LOBULAR BREAST CARCINOMA
     Dates: start: 2013
  4. EXEMESTANE. [Suspect]
     Active Substance: EXEMESTANE
     Indication: PERIORBITAL CELLULITIS
     Dates: start: 201710
  5. EVEROLIMUS. [Suspect]
     Active Substance: EVEROLIMUS
     Indication: INVASIVE LOBULAR BREAST CARCINOMA
     Route: 065
     Dates: start: 201710
  6. EXEMESTANE. [Suspect]
     Active Substance: EXEMESTANE
     Indication: MALIGNANT NEOPLASM PROGRESSION
  7. VINORELBINE [Suspect]
     Active Substance: VINORELBINE\VINORELBINE TARTRATE
     Indication: BREAST CANCER METASTATIC
     Route: 065
  8. EXEMESTANE. [Suspect]
     Active Substance: EXEMESTANE
     Indication: CELLULITIS
  9. EVEROLIMUS. [Suspect]
     Active Substance: EVEROLIMUS
     Indication: MALIGNANT NEOPLASM PROGRESSION
     Route: 065
     Dates: start: 201710

REACTIONS (9)
  - Breast cancer metastatic [Recovering/Resolving]
  - Erythema of eyelid [Recovering/Resolving]
  - Abdominal lymphadenopathy [Recovering/Resolving]
  - Cellulitis [Recovering/Resolving]
  - Malignant neoplasm progression [Recovering/Resolving]
  - Condition aggravated [Recovering/Resolving]
  - Metastases to skin [Recovering/Resolving]
  - Periorbital cellulitis [Recovering/Resolving]
  - Eyelid oedema [Recovering/Resolving]
